FAERS Safety Report 4852967-5 (Version None)
Quarter: 2005Q4

REPORT INFORMATION
  Report Type: 
  Country: None (occurrence: None)
  Receive Date: 20051212
  Receipt Date: 20051118
  Transmission Date: 20060501
  Serious: Yes (Hospitalization)
  Sender: FDA-Public Use
  Company Number: US200511001995

PATIENT
  Age: 68 Year
  Sex: Male

DRUGS (4)
  1. HUMULIN R [Suspect]
     Indication: DIABETES MELLITUS
     Dosage: 3/D
     Dates: start: 19950101
  2. LISINOPRIL [Concomitant]
  3. LASIX [Concomitant]
  4. PROSOM (ESTAZOLAM) [Concomitant]

REACTIONS (6)
  - CORONARY ARTERY OCCLUSION [None]
  - GANGRENE [None]
  - LEG AMPUTATION [None]
  - LOCALISED INFECTION [None]
  - MOBILITY DECREASED [None]
  - PHARMACEUTICAL PRODUCT COMPLAINT [None]
